FAERS Safety Report 14695841 (Version 1)
Quarter: 2018Q1

REPORT INFORMATION
  Report Type: Spontaneous
  Country: US (occurrence: US)
  Receive Date: 20180329
  Receipt Date: 20180329
  Transmission Date: 20180509
  Serious: Yes (Life-Threatening, Other)
  Sender: FDA-Public Use
  Company Number: US-ELI_LILLY_AND_COMPANY-US201803012452

PATIENT
  Age: 77 Year
  Sex: Female

DRUGS (2)
  1. DULOXETINE HYDROCHLORIDE. [Suspect]
     Active Substance: DULOXETINE HYDROCHLORIDE
     Indication: PRODUCT USED FOR UNKNOWN INDICATION
     Dosage: UNK, UNKNOWN
     Route: 065
  2. CYMBALTA [Suspect]
     Active Substance: DULOXETINE HYDROCHLORIDE
     Indication: PRODUCT USED FOR UNKNOWN INDICATION
     Dosage: UNK, UNKNOWN
     Route: 065

REACTIONS (10)
  - Weight decreased [Unknown]
  - Procedural complication [Unknown]
  - Vomiting [Unknown]
  - Malaise [Unknown]
  - Hyperhidrosis [Unknown]
  - Gastric disorder [Unknown]
  - Insomnia [Unknown]
  - Loss of consciousness [Unknown]
  - Drug withdrawal syndrome [Unknown]
  - Mental impairment [Unknown]

NARRATIVE: CASE EVENT DATE: 201709
